FAERS Safety Report 12966126 (Version 1)
Quarter: 2016Q4

REPORT INFORMATION
  Report Type: Spontaneous
  Country: US (occurrence: US)
  Receive Date: 20161121
  Receipt Date: 20161121
  Transmission Date: 20170207
  Serious: No
  Sender: FDA-Public Use
  Company Number: None

PATIENT
  Age: 25 Year
  Sex: Female

DRUGS (1)
  1. TOBRADEX [Suspect]
     Active Substance: DEXAMETHASONE\TOBRAMYCIN
     Indication: INFECTION PROPHYLAXIS
     Dates: start: 20161111

REACTIONS (2)
  - Product container seal issue [None]
  - Corneal abrasion [None]

NARRATIVE: CASE EVENT DATE: 20161121
